FAERS Safety Report 8793037 (Version 2)
Quarter: 2015Q2

REPORT INFORMATION
  Report Type: Report from Study
  Country: US (occurrence: US)
  Receive Date: 20120918
  Receipt Date: 20150623
  Transmission Date: 20150821
  Serious: Yes (Death, Other)
  Sender: FDA-Public Use
  Company Number: US-ROCHE-1104214

PATIENT
  Sex: Male
  Weight: 59 kg

DRUGS (10)
  1. AVASTIN [Suspect]
     Active Substance: BEVACIZUMAB
     Route: 042
     Dates: start: 20050920
  2. TAXOTERE [Concomitant]
     Active Substance: DOCETAXEL
     Route: 065
  3. ZOMETA [Concomitant]
     Active Substance: ZOLEDRONIC ACID
     Route: 065
  4. DECADRON [Concomitant]
     Active Substance: DEXAMETHASONE
     Route: 042
  5. AVASTIN [Suspect]
     Active Substance: BEVACIZUMAB
     Indication: MALIGNANT RESPIRATORY TRACT NEOPLASM
     Route: 042
     Dates: start: 20050830
  6. COUMADIN [Concomitant]
     Active Substance: WARFARIN SODIUM
  7. GEMZAR [Concomitant]
     Active Substance: GEMCITABINE HYDROCHLORIDE
     Route: 042
  8. FILGRASTIM [Concomitant]
     Active Substance: FILGRASTIM
     Route: 065
  9. NAVELBINE [Concomitant]
     Active Substance: VINORELBINE TARTRATE
     Route: 042
  10. LEVAQUIN [Concomitant]
     Active Substance: LEVOFLOXACIN
     Route: 048

REACTIONS (8)
  - Platelet count decreased [Unknown]
  - Blood blister [Unknown]
  - Off label use [Unknown]
  - Contusion [Unknown]
  - Pubis fracture [Unknown]
  - Fall [Unknown]
  - Ecchymosis [Unknown]
  - Death [Fatal]
